FAERS Safety Report 6866507-2 (Version None)
Quarter: 2010Q2

REPORT INFORMATION
  Report Type: 
  Country: None (occurrence: None)
  Receive Date: 20100601
  Receipt Date: 20091216
  Transmission Date: 20101027
  Serious: Yes (Other)
  Sender: FDA-Public Use
  Company Number: 2009300366

PATIENT
  Age: 46 Year
  Sex: Female

DRUGS (3)
  1. SOLU-MEDROL (METHYLPREDNISOLONE SODIUM SUCCINATE) POWDER FOR SOLUTION [Suspect]
     Dosage: INTRAVENOUS
     Route: 042
     Dates: start: 20080101
  2. REBIF [Suspect]
     Indication: MULTIPLE SCLEROSIS
     Dosage: 44 MCG, 3 IN 1 WEEK, SUBCUTANEOUS
     Route: 058
     Dates: start: 20070321
  3. CYMBALTA [Concomitant]

REACTIONS (2)
  - ANAPHYLACTIC REACTION [None]
  - HYPERSENSITIVITY [None]
